FAERS Safety Report 17819860 (Version 2)
Quarter: 2020Q3

REPORT INFORMATION
  Report Type: Spontaneous
  Country: US (occurrence: US)
  Receive Date: 20200524
  Receipt Date: 20200716
  Transmission Date: 20201102
  Serious: No
  Sender: FDA-Public Use
  Company Number: US-ASTRAZENECA-2020SE65847

PATIENT
  Sex: Female

DRUGS (4)
  1. BYDUREON BCISE [Suspect]
     Active Substance: EXENATIDE
     Dosage: 2.0MG UNKNOWN
     Route: 065
  2. BYETTA [Concomitant]
     Active Substance: EXENATIDE
  3. VICTOZA [Concomitant]
     Active Substance: LIRAGLUTIDE
  4. BYDUREON [Suspect]
     Active Substance: EXENATIDE
     Route: 065

REACTIONS (4)
  - Device delivery system issue [Unknown]
  - Device issue [Unknown]
  - Injection site pain [Unknown]
  - Incorrect dose administered by device [Unknown]
